FAERS Safety Report 9800127 (Version 3)
Quarter: 2015Q3

REPORT INFORMATION
  Report Type: Spontaneous
  Country: US (occurrence: US)
  Receive Date: 20140106
  Receipt Date: 20150806
  Transmission Date: 20151125
  Serious: No
  Sender: FDA-Public Use
  Company Number: US-GILEAD-2010-0032519

PATIENT
  Age: 58 Year
  Sex: Female
  Weight: 82.55 kg

DRUGS (24)
  1. METOPROLOL [Concomitant]
     Active Substance: METOPROLOL
  2. MOTILIUM [Concomitant]
     Active Substance: DOMPERIDONE
  3. GABAPENTIN. [Concomitant]
     Active Substance: GABAPENTIN
  4. POTASSIUM [Concomitant]
     Active Substance: POTASSIUM
  5. LETAIRIS [Suspect]
     Active Substance: AMBRISENTAN
     Indication: PULMONARY ARTERIAL HYPERTENSION
     Route: 048
     Dates: start: 20090129
  6. REVATIO [Concomitant]
     Active Substance: SILDENAFIL CITRATE
  7. SIMVASTATIN. [Concomitant]
     Active Substance: SIMVASTATIN
  8. ALBUTEROL. [Concomitant]
     Active Substance: ALBUTEROL
  9. DIOVAN [Concomitant]
     Active Substance: VALSARTAN
  10. LISINOPRIL. [Concomitant]
     Active Substance: LISINOPRIL
  11. LASIX [Concomitant]
     Active Substance: FUROSEMIDE
  12. LIPITOR [Concomitant]
     Active Substance: ATORVASTATIN CALCIUM
  13. OXYGEN. [Concomitant]
     Active Substance: OXYGEN
  14. HUMALOG [Concomitant]
     Active Substance: INSULIN LISPRO
  15. LANTUS [Concomitant]
     Active Substance: INSULIN GLARGINE
  16. LYRICA [Concomitant]
     Active Substance: PREGABALIN
  17. ASMANEX [Concomitant]
     Active Substance: MOMETASONE FUROATE
  18. SYMBICORT [Concomitant]
     Active Substance: BUDESONIDE\FORMOTEROL FUMARATE DIHYDRATE
  19. IPRATROPIUM BROMIDE. [Concomitant]
     Active Substance: IPRATROPIUM BROMIDE
  20. METOCLOPRAMIDE. [Concomitant]
     Active Substance: METOCLOPRAMIDE
  21. ALLEGRA [Concomitant]
     Active Substance: FEXOFENADINE HYDROCHLORIDE
  22. ERGOCALCIFEROL/NICOTINAMIDE/RETINOL/ASCORBIC ACID/FOLIC ACID/PANTHENOL/RIBOFLAVIN/THIAMINE HYDROCHLO [Concomitant]
  23. PRISTIQ EXTENDED RELEASE [Concomitant]
     Active Substance: DESVENLAFAXINE SUCCINATE
  24. KEFLEX [Concomitant]
     Active Substance: CEPHALEXIN

REACTIONS (1)
  - Blood glucose increased [Unknown]
